FAERS Safety Report 18677780 (Version 1)
Quarter: 2020Q4

REPORT INFORMATION
  Report Type: Spontaneous
  Country: US (occurrence: US)
  Receive Date: 20201229
  Receipt Date: 20201229
  Transmission Date: 20210114
  Serious: Yes (Other)
  Sender: FDA-Public Use
  Company Number: US-PFIZER INC-2020508229

PATIENT
  Age: 21 Year
  Sex: Male

DRUGS (1)
  1. KETAMINE HCL [Suspect]
     Active Substance: KETAMINE HYDROCHLORIDE
     Dosage: UNK (INTRANASAL)

REACTIONS (4)
  - Cystitis [Recovering/Resolving]
  - Drug abuse [Unknown]
  - Klebsiella infection [Recovering/Resolving]
  - Liver abscess [Recovering/Resolving]
